FAERS Safety Report 6663049-4 (Version None)
Quarter: 2010Q2

REPORT INFORMATION
  Report Type: 
  Country: None (occurrence: None)
  Receive Date: 20100401
  Receipt Date: 20100319
  Transmission Date: 20101027
  Serious: Yes (Other)
  Sender: FDA-Public Use
  Company Number: US-RANBAXY-2010RR-32179

PATIENT
  Age: 33 Year
  Sex: Female

DRUGS (10)
  1. DOXYCYCLINE HYDROCHLORIDE [Suspect]
     Indication: PROPHYLAXIS
     Dosage: 100 MG, UNK
  2. WARFARIN SODIUM [Suspect]
     Dosage: 38.5 MG, 1/WEEK
  3. WARFARIN SODIUM [Suspect]
     Dosage: 60 MG, 1/WEEK
  4. WARFARIN SODIUM [Suspect]
     Dosage: 55.5 MG, UNK
  5. WARFARIN SODIUM [Suspect]
     Dosage: 53.5 MG, 1/WEEK
  6. ETHINYL ESTRADIOL AND NORETHINDRONE [Suspect]
     Indication: CONTRACEPTION
     Dosage: 1.02 MG, UNK
     Route: 048
  7. NORETHISTERONE [Suspect]
     Indication: CONTRACEPTION
     Dosage: 0.35 MG, QD
     Route: 048
  8. ETONOGESTREL [Suspect]
     Route: 059
  9. FEXOFENADINE HCL AND PSEUDOEPHEDRINE HCL [Concomitant]
  10. CETIRIZINE HCL [Concomitant]
     Dosage: 10 MG, UNK

REACTIONS (3)
  - DRUG INTERACTION [None]
  - INTERNATIONAL NORMALISED RATIO INCREASED [None]
  - VAGINAL HAEMORRHAGE [None]
